FAERS Safety Report 6832912-3 (Version None)
Quarter: 2010Q3

REPORT INFORMATION
  Report Type: 
  Country: None (occurrence: None)
  Receive Date: 20100712
  Receipt Date: 20070314
  Transmission Date: 20110219
  Serious: No
  Sender: FDA-Public Use
  Company Number: US-PFIZER INC-2007022423

PATIENT
  Sex: Female
  Weight: 63.05 kg

DRUGS (3)
  1. CHANTIX [Suspect]
     Indication: SMOKING CESSATION THERAPY
     Route: 048
     Dates: start: 20070309
  2. LEVOXYL [Concomitant]
     Route: 048
  3. BENICAR [Concomitant]
     Route: 048

REACTIONS (3)
  - CHEST DISCOMFORT [None]
  - DIZZINESS [None]
  - FEAR [None]
